FAERS Safety Report 9039089 (Version 1)
Quarter: 2013Q1

REPORT INFORMATION
  Report Type: Report from Study
  Country: US (occurrence: US)
  Receive Date: 20130129
  Receipt Date: 20130129
  Transmission Date: 20140127
  Serious: No
  Sender: FDA-Public Use
  Company Number: US-ABBOTT-12P-163-0931166-00

PATIENT
  Age: 48 Year
  Sex: Female

DRUGS (4)
  1. HUMIRA 40 MG/0.8 ML PEN [Suspect]
     Indication: RHEUMATOID ARTHRITIS
  2. SYNTHROID [Concomitant]
     Indication: HYPOTHYROIDISM
     Dosage: 125MG ONCE A DAY
  3. OMEPRAZOLE [Concomitant]
     Indication: GASTROOESOPHAGEAL REFLUX DISEASE
     Dosage: 40MG DAILY
  4. BUDESONIDE [Concomitant]
     Indication: COLITIS

REACTIONS (2)
  - Device malfunction [Not Recovered/Not Resolved]
  - Injection site pain [Not Recovered/Not Resolved]
